FAERS Safety Report 23465395 (Version 1)
Quarter: 2024Q1

REPORT INFORMATION
  Report Type: Report from Study
  Country: US (occurrence: US)
  Receive Date: 20240201
  Receipt Date: 20240201
  Transmission Date: 20240410
  Serious: Yes (Other)
  Sender: FDA-Public Use
  Company Number: US-UCBSA-2024004515

PATIENT
  Age: 51 Year
  Sex: Male

DRUGS (1)
  1. CERTOLIZUMAB PEGOL [Suspect]
     Active Substance: CERTOLIZUMAB PEGOL
     Indication: Product used for unknown indication
     Dosage: UNK
     Dates: start: 20231123, end: 20231222

REACTIONS (9)
  - Feeling abnormal [Recovering/Resolving]
  - Lethargy [Recovering/Resolving]
  - Movement disorder [Recovering/Resolving]
  - Hyperhidrosis [Recovering/Resolving]
  - Respiratory tract congestion [Recovering/Resolving]
  - Chills [Recovering/Resolving]
  - Dehydration [Recovering/Resolving]
  - Pyrexia [Recovering/Resolving]
  - Pharyngitis streptococcal [Recovering/Resolving]

NARRATIVE: CASE EVENT DATE: 20240122
